FAERS Safety Report 7052405-0 (Version None)
Quarter: 2010Q4

REPORT INFORMATION
  Report Type: 
  Country: None (occurrence: None)
  Receive Date: 20101019
  Receipt Date: 20101014
  Transmission Date: 20110411
  Serious: Yes (Hospitalization)
  Sender: FDA-Public Use
  Company Number: FR-WYE-G06812010

PATIENT
  Age: 3 Month
  Sex: Male

DRUGS (4)
  1. IBUPROFEN (ADVIL) [Suspect]
     Indication: PYREXIA
     Dosage: UNKNOWN
     Route: 048
     Dates: start: 20101011, end: 20101012
  2. IBUPROFEN (ADVIL) [Suspect]
     Indication: NASOPHARYNGITIS
  3. ACETAMINOPHEN [Concomitant]
     Indication: PYREXIA
     Dosage: UNKNOWN
     Route: 048
     Dates: start: 20101011, end: 20101012
  4. ACETAMINOPHEN [Concomitant]
     Indication: NASOPHARYNGITIS

REACTIONS (9)
  - CONDITION AGGRAVATED [None]
  - COUGH [None]
  - DEHYDRATION [None]
  - FONTANELLE DEPRESSED [None]
  - NASOPHARYNGITIS [None]
  - PALLOR [None]
  - POLYURIA [None]
  - PYREXIA [None]
  - SOMNOLENCE [None]
